FAERS Safety Report 10023426 (Version 1)
Quarter: 2013Q4

REPORT INFORMATION
  Report Type: Spontaneous
  Country: US (occurrence: None)
  Receive Date: 20131223
  Receipt Date: 20131223
  Transmission Date: 20140711
  Serious: Yes (Hospitalization)
  Sender: FDA-Public Use
  Company Number: DSA_55330_2012

PATIENT
  Sex: Female

DRUGS (3)
  1. WELLBUTRIN SR (BUPROPION HYDROCHLORIDE) (TABLET CONTROLLED RELEASE) (BUPROPION HYDROCHLORIDE)? [Suspect]
     Indication: PRODUCT USED FOR UNKNOWN INDICATION
     Dosage: 150 MG, 2 IN 1 D?
     Dates: start: 20050505
  2. LAMICTAL (LAMOTRIGINE) (TABLET) (LAMOTRIGINE) [Suspect]
     Indication: BIPOLAR DISORDER
     Route: 048
  3. CANCER CHEMOTHERAPY (OTHER CHEMOTHEAPEUTICS) (NULL) [Suspect]
     Indication: NEOPLASM MALIGNANT

REACTIONS (7)
  - Dizziness [None]
  - Disturbance in attention [None]
  - Amnesia [None]
  - Road traffic accident [None]
  - Malaise [None]
  - Agitation [None]
  - Neoplasm malignant [None]
